FAERS Safety Report 7013075-0 (Version None)
Quarter: 2010Q3

REPORT INFORMATION
  Report Type: 
  Country: None (occurrence: None)
  Receive Date: 20100924
  Receipt Date: 20100914
  Transmission Date: 20110219
  Serious: Yes (Hospitalization)
  Sender: FDA-Public Use
  Company Number: JP-PFIZER INC-2010116246

PATIENT
  Age: 86 Year
  Sex: Male
  Weight: 57 kg

DRUGS (17)
  1. NORVASC [Suspect]
     Indication: HYPERTENSION
     Dosage: 2.5 MG, 1X/DAY
     Route: 048
     Dates: start: 20091225, end: 20100215
  2. AMLODIN [Suspect]
     Indication: HYPERTENSION
     Dosage: 2.5 MG, 1X/DAY
     Route: 048
     Dates: end: 20091224
  3. PAXIL [Suspect]
     Indication: DEPRESSIVE SYMPTOM
     Dosage: 10 MG, 2X/DAY
     Route: 048
     Dates: end: 20100211
  4. PAXIL [Suspect]
     Dosage: 5 MG, 1X/DAY
     Route: 048
     Dates: start: 20100212, end: 20100213
  5. PAXIL [Suspect]
     Dosage: 2.5 MG, 1X/DAY
     Route: 048
     Dates: start: 20100214, end: 20100215
  6. SULPIRIDE [Suspect]
     Indication: DEPRESSIVE SYMPTOM
     Dosage: UNK
     Route: 048
     Dates: end: 20080901
  7. POLARAMINE [Suspect]
     Indication: PRURITUS
     Dosage: 2 MG, 2X/DAY
     Route: 048
     Dates: start: 20080101, end: 20091224
  8. DORAL [Concomitant]
     Indication: INSOMNIA
     Dosage: 15 MG, 1X/DAY
     Route: 048
     Dates: end: 20091224
  9. DORAL [Concomitant]
     Dosage: 10 MG, 1X/DAY
     Route: 048
     Dates: start: 20091225
  10. DOPACOL [Concomitant]
     Indication: PARKINSONISM
     Dosage: 100 MG, 2X/DAY
     Route: 048
     Dates: start: 20080301, end: 20091224
  11. MENESIT [Concomitant]
     Indication: PARKINSONISM
     Dosage: 100 MG, 2X/DAY
     Route: 048
     Dates: start: 20091225, end: 20100222
  12. MENESIT [Concomitant]
     Dosage: 50 MG, 2X/DAY
     Route: 048
     Dates: start: 20100223, end: 20100225
  13. MENESIT [Concomitant]
     Dosage: 50 MG, 1X/DAY
     Route: 048
     Dates: start: 20100226, end: 20100302
  14. MAGNESIUM OXIDE [Concomitant]
     Indication: CONSTIPATION
     Dosage: 1 G, 3X/DAY
     Route: 048
     Dates: start: 20091225
  15. LENDORMIN [Concomitant]
     Indication: INSOMNIA
     Dosage: 0.25 MG, 1X/DAY
     Route: 048
     Dates: start: 20091225
  16. SENNAL [Concomitant]
     Indication: CONSTIPATION
     Dosage: 12 MG, 1X/DAY
     Route: 048
     Dates: end: 20091224
  17. MAGMITT [Concomitant]
     Indication: CONSTIPATION
     Dosage: 330 MG, 3X/DAY
     Route: 048
     Dates: end: 20091224

REACTIONS (1)
  - PARKINSONISM [None]
